FAERS Safety Report 8833280 (Version 2)
Quarter: 2013Q1

REPORT INFORMATION
  Report Type: Spontaneous
  Country: US (occurrence: US)
  Receive Date: 20121010
  Receipt Date: 20130314
  Transmission Date: 20140127
  Serious: Yes (Hospitalization)
  Sender: FDA-Public Use
  Company Number: US-VERTEX PHARMACEUTICAL INC.-2012-021825

PATIENT
  Age: 56 Year
  Sex: Female
  Weight: 104.31 kg

DRUGS (7)
  1. INCIVEK [Suspect]
     Indication: HEPATITIS C
     Dosage: 750 MG, TID
     Route: 048
     Dates: start: 20120824, end: 20121123
  2. RIBAVIRIN [Suspect]
     Indication: HEPATITIS C
     Dosage: 600 MG, BID
     Route: 048
     Dates: start: 20120824, end: 20130215
  3. PEGASYS [Suspect]
     Indication: HEPATITIS C
     Dosage: 180 ?G, UNK
     Route: 058
     Dates: start: 20120824, end: 20130215
  4. HYDROXYZINE HCL [Concomitant]
     Indication: PRURITUS
     Dosage: 25 MG, QID
  5. LISINOPRIL/HCL [Concomitant]
     Indication: HYPERTENSION
     Dosage: 42.5 MC
     Route: 048
  6. LISINOPRIL/HCL [Concomitant]
     Dosage: UNK
  7. IBUPROFEN [Concomitant]
     Indication: PAIN
     Dosage: 600 MG, TID
     Route: 048

REACTIONS (9)
  - White blood cell count decreased [Unknown]
  - Constipation [Unknown]
  - Rash pruritic [Recovered/Resolved]
  - Platelet count decreased [Unknown]
  - Rectal haemorrhage [Unknown]
  - Painful defaecation [Not Recovered/Not Resolved]
  - Anorectal discomfort [Not Recovered/Not Resolved]
  - Anal pruritus [Not Recovered/Not Resolved]
  - Haemorrhoids [Not Recovered/Not Resolved]
